FAERS Safety Report 12561948 (Version 2)
Quarter: 2016Q3

REPORT INFORMATION
  Report Type: Spontaneous
  Country: US (occurrence: US)
  Receive Date: 20160715
  Receipt Date: 20160719
  Transmission Date: 20161109
  Serious: Yes (Other)
  Sender: FDA-Public Use
  Company Number: US-TEVA-676682USA

PATIENT
  Age: 42 Year
  Sex: Female

DRUGS (1)
  1. ZECUITY [Suspect]
     Active Substance: SUMATRIPTAN SUCCINATE
     Dosage: 6.5 MG OVER 4 HOURS
     Route: 062
     Dates: start: 201606

REACTIONS (9)
  - Application site exfoliation [Recovered/Resolved]
  - Application site vesicles [Recovered/Resolved]
  - Application site discolouration [Recovering/Resolving]
  - Product adhesion issue [Unknown]
  - Application site erythema [Recovered/Resolved]
  - Product physical issue [Unknown]
  - Incorrect drug administration duration [Unknown]
  - Application site burn [Recovered/Resolved]
  - Burning sensation [Unknown]

NARRATIVE: CASE EVENT DATE: 201606
